FAERS Safety Report 21863522 (Version 1)
Quarter: 2023Q1

REPORT INFORMATION
  Report Type: Report from Study
  Country: US (occurrence: US)
  Receive Date: 20230115
  Receipt Date: 20230115
  Transmission Date: 20230418
  Serious: No
  Sender: FDA-Public Use
  Company Number: US-ABBVIE-4261868

PATIENT
  Age: 52 Year
  Sex: Male

DRUGS (1)
  1. HUMIRA [Suspect]
     Active Substance: ADALIMUMAB
     Indication: Rheumatoid arthritis
     Dosage: CITRATE FREE
     Route: 058
     Dates: start: 20220816

REACTIONS (8)
  - Swelling face [Unknown]
  - Papule [Unknown]
  - Joint swelling [Unknown]
  - Lip swelling [Unknown]
  - Lip swelling [Recovered/Resolved]
  - Joint swelling [Unknown]
  - Mouth swelling [Recovered/Resolved]
  - Swelling face [Unknown]

NARRATIVE: CASE EVENT DATE: 20221207
